FAERS Safety Report 8214250-X (Version None)
Quarter: 2012Q1

REPORT INFORMATION
  Report Type: 
  Country: None (occurrence: None)
  Receive Date: 20120315
  Receipt Date: 20120315
  Transmission Date: 20120608
  Serious: Yes (Other)
  Sender: FDA-Public Use
  Company Number: None

PATIENT

DRUGS (1)
  1. HYDROGEN PEROXIDE SOLUTION [Suspect]
     Indication: DENTAL COSMETIC PROCEDURE
     Dosage: DENTAL
     Route: 004

REACTIONS (5)
  - ORAL DISCOMFORT [None]
  - EATING DISORDER [None]
  - DRUG INEFFECTIVE [None]
  - SPEECH DISORDER [None]
  - OEDEMA MOUTH [None]
